FAERS Safety Report 9358583 (Version 1)
Quarter: 2013Q2

REPORT INFORMATION
  Report Type: Spontaneous
  Country: DE (occurrence: DE)
  Receive Date: 20130620
  Receipt Date: 20130620
  Transmission Date: 20140414
  Serious: Yes (Hospitalization)
  Sender: FDA-Public Use
  Company Number: PHHY2013DE042573

PATIENT
  Age: 78 Year
  Sex: Female
  Weight: 82.7 kg

DRUGS (4)
  1. PANTOPRAZOLE [Suspect]
     Indication: HELICOBACTER INFECTION
  2. PANTOPRAZOLE [Suspect]
     Indication: DUODENAL ULCER
  3. CLARITHROMYCIN [Suspect]
     Indication: HELICOBACTER INFECTION
  4. AMOXICILLIN [Suspect]
     Indication: HELICOBACTER INFECTION

REACTIONS (23)
  - Cardiomegaly [Unknown]
  - Inflammation [Unknown]
  - Dyspnoea [Unknown]
  - Renal failure acute [Recovered/Resolved]
  - Nephritis allergic [Unknown]
  - Pyrexia [Unknown]
  - Dysuria [Unknown]
  - Glomerular filtration rate decreased [Unknown]
  - Blood creatinine increased [Unknown]
  - Anuria [Unknown]
  - Haematuria [Unknown]
  - Leukocyturia [Unknown]
  - Proteinuria [Unknown]
  - Renal tubular disorder [Unknown]
  - Glomerulosclerosis [Unknown]
  - Pulmonary fibrosis [Unknown]
  - Pleural effusion [Unknown]
  - Fluid overload [Recovered/Resolved]
  - Tubulointerstitial nephritis [Recovered/Resolved]
  - Arrhythmia [Unknown]
  - Feeling hot [Unknown]
  - Stasis dermatitis [Unknown]
  - Inferior vena cava dilatation [Unknown]
